FAERS Safety Report 5896735-4 (Version None)
Quarter: 2008Q3

REPORT INFORMATION
  Report Type: 
  Country: None (occurrence: None)
  Receive Date: 20080924
  Receipt Date: 20080108
  Transmission Date: 20090109
  Serious: Yes (Other)
  Sender: FDA-Public Use
  Company Number: US-ASTRAZENECA-2007UW24679

PATIENT
  Age: 14378 Day
  Sex: Male

DRUGS (8)
  1. SEROQUEL [Suspect]
     Indication: BIPOLAR DISORDER
     Route: 048
     Dates: start: 20040101
  2. SEROQUEL [Suspect]
     Route: 048
  3. SEROQUEL [Suspect]
     Route: 048
     Dates: start: 20050701
  4. SEROQUEL [Suspect]
     Route: 048
     Dates: start: 20051207, end: 20061012
  5. ZOLOFT [Concomitant]
     Indication: DEPRESSION
     Route: 048
     Dates: start: 20050101
  6. DEPAKOTE ER [Concomitant]
     Indication: BIPOLAR DISORDER
     Route: 048
     Dates: start: 20040101
  7. KLONOPIN [Concomitant]
     Indication: ANXIETY
     Route: 048
     Dates: start: 20040101
  8. AMBIEN [Concomitant]
     Indication: INSOMNIA
     Route: 048
     Dates: start: 20060901

REACTIONS (1)
  - PRIAPISM [None]
